FAERS Safety Report 18265926 (Version 1)
Quarter: 2020Q3

REPORT INFORMATION
  Report Type: Spontaneous
  Country: US (occurrence: US)
  Receive Date: 20200915
  Receipt Date: 20200915
  Transmission Date: 20201103
  Serious: No
  Sender: FDA-Public Use
  Company Number: US-STRIDES ARCOLAB LIMITED-2020SP008926

PATIENT
  Age: 62 Year
  Sex: Male

DRUGS (1)
  1. ACETAZOLAMIDE. [Suspect]
     Active Substance: ACETAZOLAMIDE
     Indication: INTRAOCULAR PRESSURE INCREASED
     Dosage: UNK, BID, ORAL ACETAZOLAMIDE EXTENDED RELEASE TWICE A DAY WAS INITIATED
     Route: 048

REACTIONS (1)
  - Drug ineffective [Unknown]
